FAERS Safety Report 4947708-7 (Version None)
Quarter: 2006Q1

REPORT INFORMATION
  Report Type: 
  Country: None (occurrence: None)
  Receive Date: 20060320
  Receipt Date: 20060307
  Transmission Date: 20060701
  Serious: Yes (Other)
  Sender: FDA-Public Use
  Company Number: 2006AC00471

PATIENT
  Age: 68 Year
  Sex: Male

DRUGS (5)
  1. QUETIAPINE [Suspect]
     Indication: SCHIZOAFFECTIVE DISORDER
     Dosage: ON DAY 1
     Route: 048
  2. QUETIAPINE [Suspect]
     Dosage: FROM DAY 2
     Route: 048
  3. MIRTAZAPINE [Suspect]
     Indication: SCHIZOAFFECTIVE DISORDER
  4. LAMOTRIGINE [Suspect]
     Indication: SCHIZOAFFECTIVE DISORDER
  5. LITHIUM CARBONATE [Suspect]
     Indication: SCHIZOAFFECTIVE DISORDER

REACTIONS (6)
  - ASTHENIA [None]
  - BLOOD CREATINE PHOSPHOKINASE INCREASED [None]
  - HYPERHIDROSIS [None]
  - MYALGIA [None]
  - TACHYCARDIA [None]
  - URINARY INCONTINENCE [None]
